FAERS Safety Report 9710131 (Version 2)
Quarter: 2013Q4

REPORT INFORMATION
  Report Type: Spontaneous
  Country: US (occurrence: US)
  Receive Date: 20131126
  Receipt Date: 20131204
  Transmission Date: 20140711
  Serious: Yes (Other)
  Sender: FDA-Public Use
  Company Number: US-TEVA-446371USA

PATIENT
  Sex: Male

DRUGS (2)
  1. COPAXONE [Suspect]
     Indication: MULTIPLE SCLEROSIS
     Dates: start: 20071115
  2. STEROIDS [Suspect]

REACTIONS (11)
  - Multiple sclerosis relapse [Unknown]
  - Deafness [Unknown]
  - Visual field defect [Unknown]
  - Fall [Unknown]
  - Head injury [Unknown]
  - Amnesia [Unknown]
  - Computerised tomogram abnormal [Unknown]
  - Mental disorder [Unknown]
  - Mood altered [Unknown]
  - Agitation [Unknown]
  - Paranoia [Unknown]
